FAERS Safety Report 7591692-7 (Version None)
Quarter: 2011Q3

REPORT INFORMATION
  Report Type: 
  Country: None (occurrence: None)
  Receive Date: 20110706
  Receipt Date: 20110615
  Transmission Date: 20111222
  Serious: Yes (Hospitalization)
  Sender: FDA-Public Use
  Company Number: US-BAYER-2010-006593

PATIENT
  Age: 18 Year
  Sex: Female
  Weight: 107 kg

DRUGS (1)
  1. YAZ [Suspect]
     Indication: ACNE
     Dosage: UNK
     Dates: start: 20050101, end: 20090101

REACTIONS (4)
  - BILIARY COLIC [None]
  - PAIN [None]
  - SCAR [None]
  - BILIARY DYSKINESIA [None]
